FAERS Safety Report 25902169 (Version 1)
Quarter: 2025Q4

REPORT INFORMATION
  Report Type: Spontaneous
  Country: CL (occurrence: CL)
  Receive Date: 20251009
  Receipt Date: 20251009
  Transmission Date: 20260117
  Serious: Yes (Other)
  Sender: FRESENIUS KABI
  Company Number: CL-FreseniusKabi-FK202513570

PATIENT
  Sex: Female

DRUGS (2)
  1. CISPLATIN [Suspect]
     Active Substance: CISPLATIN
     Indication: Chemotherapy
     Dosage: DOSE: 90 MG (SINGLE DOSE)?THERAPY DURATION: CYCLE 4 OF 21
     Route: 042
     Dates: start: 20251001
  2. PACLITAXEL [Concomitant]
     Active Substance: PACLITAXEL
     Indication: Product used for unknown indication
     Dosage: 320 MG (SINGLE DOSE)

REACTIONS (2)
  - Respiratory distress [Unknown]
  - Erythema [Unknown]

NARRATIVE: CASE EVENT DATE: 20251001
